FAERS Safety Report 6661236-2 (Version None)
Quarter: 2010Q1

REPORT INFORMATION
  Report Type: 
  Country: None (occurrence: None)
  Receive Date: 20100331
  Receipt Date: 20100329
  Transmission Date: 20100710
  Serious: Yes (Other)
  Sender: FDA-Public Use
  Company Number: BR-ROCHE-694037

PATIENT
  Sex: Female
  Weight: 80 kg

DRUGS (5)
  1. RIVOTRIL [Suspect]
     Indication: INSOMNIA
     Dosage: 1 TABLET OF 2 MG AT NIGHT (BEFORE SLEEP)
     Route: 048
     Dates: start: 20070101
  2. INSULIN [Concomitant]
     Dosage: MORNING AND AFTERNOON
  3. DAONIL [Concomitant]
     Dosage: 2 TABLETS ON MORNING AND 2 TABLETS ON AFTERNOON
  4. ZETRON [Concomitant]
     Indication: DEPRESSION
     Dosage: 2 TABLETS IN MORNING
  5. METFORMIN (GLUCOPHAGE) [Concomitant]
     Dosage: AFTER LUNCH

REACTIONS (4)
  - DIABETES MELLITUS INADEQUATE CONTROL [None]
  - HEADACHE [None]
  - SOMNOLENCE [None]
  - THERAPEUTIC RESPONSE DECREASED [None]
